FAERS Safety Report 6584764-7 (Version None)
Quarter: 2010Q1

REPORT INFORMATION
  Report Type: 
  Country: None (occurrence: None)
  Receive Date: 20100217
  Receipt Date: 20100215
  Transmission Date: 20100710
  Serious: Yes (Death, Other)
  Sender: FDA-Public Use
  Company Number: PHEH2009US17613

PATIENT
  Sex: Male

DRUGS (4)
  1. EXJADE [Suspect]
     Indication: MYELODYSPLASTIC SYNDROME
     Dosage: 250 MG
  2. LISINOPRIL [Concomitant]
     Dosage: 10 MG, UNK
  3. PRILOSEC [Concomitant]
  4. ASPIRIN [Concomitant]

REACTIONS (3)
  - CARDIAC FAILURE [None]
  - DEATH [None]
  - RENAL FAILURE [None]
